FAERS Safety Report 8920981 (Version 1)
Quarter: 2012Q4

REPORT INFORMATION
  Report Type: 
  Country: US (occurrence: US)
  Receive Date: 20121122
  Receipt Date: 20121122
  Transmission Date: 20130627
  Serious: No
  Sender: FDA-Public Use
  Company Number: US-PFIZER INC-2012291765

PATIENT
  Age: 35 Year
  Sex: Female

DRUGS (3)
  1. PRISTIQ [Suspect]
     Indication: DEPRESSION
     Dosage: 50 mg, UNK
     Dates: start: 2012, end: 2012
  2. PRISTIQ [Suspect]
     Dosage: 100 mg, UNK
     Dates: start: 2012, end: 2012
  3. PRISTIQ [Suspect]
     Dosage: UNK
     Dates: start: 2012

REACTIONS (1)
  - Vision blurred [Unknown]
